FAERS Safety Report 8335257-8 (Version None)
Quarter: 2012Q2

REPORT INFORMATION
  Report Type: 
  Country: None (occurrence: None)
  Receive Date: 20120503
  Receipt Date: 20120425
  Transmission Date: 20120825
  Serious: Yes (Other)
  Sender: FDA-Public Use
  Company Number: CA-ROCHE-1045882

PATIENT
  Sex: Male

DRUGS (2)
  1. XOLAIR [Suspect]
     Indication: ASTHMA
     Route: 058
     Dates: start: 20100823
  2. XOLAIR [Suspect]
     Dates: start: 20111012

REACTIONS (8)
  - BRONCHITIS [None]
  - LOWER RESPIRATORY TRACT INFECTION [None]
  - PNEUMONIA [None]
  - MALAISE [None]
  - NASOPHARYNGITIS [None]
  - NASAL CONGESTION [None]
  - INJECTION SITE PAIN [None]
  - COUGH [None]
